FAERS Safety Report 18521040 (Version 1)
Quarter: 2020Q4

REPORT INFORMATION
  Report Type: Report from Study
  Country: US (occurrence: US)
  Receive Date: 20201119
  Receipt Date: 20201119
  Transmission Date: 20210114
  Serious: Yes (Death, Other)
  Sender: FDA-Public Use
  Company Number: US-BRISTOL-MYERS SQUIBB COMPANY-BMS-2020-096758

PATIENT
  Age: 27 Year
  Sex: Male
  Weight: 145.15 kg

DRUGS (1)
  1. APIXABAN [Suspect]
     Active Substance: APIXABAN
     Indication: PULMONARY EMBOLISM
     Dosage: 5 MILLIGRAM, BID
     Route: 048
     Dates: start: 201601

REACTIONS (3)
  - Brain stem stroke [Fatal]
  - Hepatic neoplasm [Unknown]
  - Cerebral thrombosis [Fatal]

NARRATIVE: CASE EVENT DATE: 20190728
